FAERS Safety Report 5941329-5 (Version None)
Quarter: 2008Q4

REPORT INFORMATION
  Report Type: 
  Country: None (occurrence: None)
  Receive Date: 20081105
  Receipt Date: 20081024
  Transmission Date: 20090506
  Serious: Yes (Life-Threatening, Hospitalization)
  Sender: FDA-Public Use
  Company Number: EMADSS2002007643

PATIENT
  Age: 47 Year
  Sex: Male
  Weight: 74.7 kg

DRUGS (3)
  1. REMICADE [Suspect]
     Route: 041
     Dates: start: 20021009
  2. REMICADE [Suspect]
     Indication: ANKYLOSING SPONDYLITIS
     Route: 041
     Dates: start: 20021009
  3. METHOTREXATE [Concomitant]
     Indication: ANKYLOSING SPONDYLITIS
     Route: 048
     Dates: start: 20020510

REACTIONS (1)
  - MENINGITIS LISTERIA [None]
